FAERS Safety Report 6308390-X (Version None)
Quarter: 2009Q3

REPORT INFORMATION
  Report Type: 
  Country: None (occurrence: None)
  Receive Date: 20090813
  Receipt Date: 20090804
  Transmission Date: 20100115
  Serious: Yes (Hospitalization)
  Sender: FDA-Public Use
  Company Number: CZ-GENENTECH-288066

PATIENT
  Sex: Male

DRUGS (4)
  1. BEVACIZUMAB [Suspect]
     Indication: RENAL CANCER
     Dosage: 810 MG, QD
     Route: 042
     Dates: start: 20081202
  2. INTERFERON ALFA-2A [Suspect]
     Indication: RENAL CANCER
     Dosage: 9 MG, 3/WEEK
     Route: 058
     Dates: start: 20081202
  3. SECTRAL [Concomitant]
     Indication: DRUG USE FOR UNKNOWN INDICATION
     Dosage: UNK
  4. AMLODIPINE [Concomitant]
     Indication: DRUG USE FOR UNKNOWN INDICATION
     Dosage: UNK

REACTIONS (1)
  - ANAEMIA [None]
